FAERS Safety Report 17173309 (Version 1)
Quarter: 2019Q4

REPORT INFORMATION
  Report Type: Spontaneous
  Country: US (occurrence: US)
  Receive Date: 20191126
  Receipt Date: 20191126
  Transmission Date: 20200122
  Serious: No
  Sender: FDA-Public Use
  Company Number: None

PATIENT
  Age: 56 Year
  Sex: Female

DRUGS (1)
  1. OLUMIANT [Suspect]
     Active Substance: BARICITINIB
     Indication: RHEUMATOID ARTHRITIS
     Route: 048
     Dates: start: 201908

REACTIONS (5)
  - Abdominal pain upper [None]
  - Therapy cessation [None]
  - Musculoskeletal stiffness [None]
  - Stomatitis [None]
  - Pain [None]

NARRATIVE: CASE EVENT DATE: 20191126
